FAERS Safety Report 9550947 (Version 1)
Quarter: 2013Q3

REPORT INFORMATION
  Report Type: Spontaneous
  Country: US (occurrence: US)
  Receive Date: 20130924
  Receipt Date: 20130924
  Transmission Date: 20140515
  Serious: No
  Sender: FDA-Public Use
  Company Number: US-SANOFI-AVENTIS-2013SA050160

PATIENT
  Age: 53 Year
  Sex: Female
  Weight: 106.59 kg

DRUGS (9)
  1. AUBAGIO [Suspect]
     Indication: MULTIPLE SCLEROSIS
     Route: 048
     Dates: start: 20130428
  2. NORVASC [Concomitant]
     Route: 065
  3. VESICARE [Concomitant]
     Route: 065
  4. ALL OTHER THERAPEUTIC PRODUCTS [Concomitant]
     Route: 065
  5. NEXIUM [Concomitant]
     Route: 065
  6. LEXAPRO [Concomitant]
     Route: 065
  7. LIPITOR [Concomitant]
     Route: 065
  8. FLEXERIL [Concomitant]
     Indication: MUSCLE SPASMS
     Route: 065
  9. PHENERGAN [Concomitant]
     Indication: NAUSEA
     Route: 065

REACTIONS (8)
  - Joint stiffness [Not Recovered/Not Resolved]
  - Movement disorder [Not Recovered/Not Resolved]
  - Pain in extremity [Not Recovered/Not Resolved]
  - Fall [Not Recovered/Not Resolved]
  - Muscle spasms [Not Recovered/Not Resolved]
  - Hot flush [Not Recovered/Not Resolved]
  - Diarrhoea [Recovered/Resolved]
  - Alopecia [Unknown]
